FAERS Safety Report 13029277 (Version 2)
Quarter: 2016Q4

REPORT INFORMATION
  Report Type: Report from Study
  Country: None (occurrence: FR)
  Receive Date: 20161215
  Receipt Date: 20161220
  Transmission Date: 20170207
  Serious: Yes (Hospitalization, Disabling)
  Sender: FDA-Public Use
  Company Number: FR-ABBVIE-16P-056-1804640-00

PATIENT
  Age: 77 Year
  Sex: Female
  Weight: 47 kg

DRUGS (3)
  1. AMPHOTERICINE B [Concomitant]
     Active Substance: AMPHOTERICIN B
     Indication: PRODUCT USED FOR UNKNOWN INDICATION
  2. EXVIERA [Suspect]
     Active Substance: DASABUVIR
     Indication: HEPATITIS C
     Dosage: 1 DF IN THE MORNING AND 1 DF IN THE EVENING.--SCHEDULED FOR 12 WEEKS
     Route: 048
     Dates: start: 20161114, end: 20161207
  3. VIEKIRAX [Suspect]
     Active Substance: OMBITASVIR\PARITAPREVIR\RITONAVIR
     Indication: HEPATITIS C
     Dosage: 2 DF ONCE DAILY IN THE MORNING--SCHEDULED FOR 12 WEEKS
     Route: 048
     Dates: start: 20161114, end: 20161207

REACTIONS (3)
  - Diabetes mellitus [Unknown]
  - Fungal oesophagitis [Unknown]
  - Food intolerance [Unknown]

NARRATIVE: CASE EVENT DATE: 20161207
